FAERS Safety Report 9119680 (Version 1)
Quarter: 2013Q1

REPORT INFORMATION
  Report Type: Spontaneous
  Country: FR (occurrence: FR)
  Receive Date: 20130226
  Receipt Date: 20130226
  Transmission Date: 20140127
  Serious: Yes (Death, Life-Threatening, Hospitalization, Other)
  Sender: FDA-Public Use
  Company Number: FR-ASTRAZENECA-2013SE12430

PATIENT
  Age: 75 Year
  Sex: Male
  Weight: 62 kg

DRUGS (3)
  1. INEXIUM [Suspect]
     Route: 042
     Dates: start: 20121030, end: 20121130
  2. TRIFLUCAN [Interacting]
     Indication: CANDIDA INFECTION
     Route: 042
     Dates: start: 20121121, end: 20121128
  3. TAHOR [Interacting]
     Route: 048
     Dates: end: 20121127

REACTIONS (9)
  - Potentiating drug interaction [Unknown]
  - Death [Fatal]
  - Rhabdomyolysis [Recovering/Resolving]
  - Liver injury [Unknown]
  - Hypocholesterolaemia [Unknown]
  - Renal failure acute [Unknown]
  - Prothrombin level decreased [Unknown]
  - Thrombocytopenia [Unknown]
  - Candida infection [Unknown]
